FAERS Safety Report 6558233-4 (Version None)
Quarter: 2010Q1

REPORT INFORMATION
  Report Type: 
  Country: None (occurrence: None)
  Receive Date: 20100127
  Receipt Date: 20100127
  Transmission Date: 20100710
  Serious: Yes (Hospitalization)
  Sender: FDA-Public Use
  Company Number: None

PATIENT
  Age: 89 Year
  Sex: Male
  Weight: 66.6 kg

DRUGS (17)
  1. COUMADIN [Suspect]
     Indication: ATRIAL FIBRILLATION
     Dosage: 3.5MG M/TH QHS ONLY 2 DAYS/NI PO, CHRONIC
     Route: 048
  2. COUMADIN [Suspect]
     Indication: ATRIAL FIBRILLATION
     Dosage: 2.5 MG TWF SA SU PO, CHRONIC
     Route: 048
  3. CELEBREX [Suspect]
     Indication: ATRIAL FIBRILLATION
     Dosage: 3.5MG M/TH QHS ONLY 2 DAYS/NI PO, CHRONIC
     Route: 048
  4. COLCHICINE [Suspect]
     Indication: ATRIAL FIBRILLATION
     Dosage: 2.5 MG T W F SA SU PO CHRONIC
     Route: 048
  5. XELODA [Suspect]
     Indication: ATRIAL FIBRILLATION
     Dosage: 3.5MG M/TH QHS ONLY 2 DAYS/NI PO, CHRONIC
     Route: 048
  6. RESTORIL [Concomitant]
  7. METOPROLOL [Concomitant]
  8. DIOVAN [Concomitant]
  9. FLOMAX [Concomitant]
  10. POTASSIUM CHLORIDE [Concomitant]
  11. COMPAZINE [Concomitant]
  12. ZOFRAN [Concomitant]
  13. ALLOPURINOL [Concomitant]
  14. NORVASC [Concomitant]
  15. LORTAB [Concomitant]
  16. LASIX [Concomitant]
  17. CAPECITABINE [Concomitant]

REACTIONS (6)
  - ADENOCARCINOMA [None]
  - COAGULOPATHY [None]
  - DUODENAL ULCER [None]
  - GASTROINTESTINAL HAEMORRHAGE [None]
  - HYPOGLYCAEMIA [None]
  - RENAL FAILURE [None]
